FAERS Safety Report 21961739 (Version 1)
Quarter: 2023Q1

REPORT INFORMATION
  Report Type: Other
  Country: None (occurrence: US)
  Receive Date: 20230207
  Receipt Date: 20230207
  Transmission Date: 20230418
  Serious: Yes (Hospitalization, Other)
  Sender: FDA-Public Use
  Company Number: US-Spectra Medical Devices, LLC-2137600

PATIENT
  Age: 29 Year
  Sex: Female

DRUGS (6)
  1. LIDOCAINE HYDROCHLORIDE ANHYDROUS [Suspect]
     Active Substance: LIDOCAINE HYDROCHLORIDE ANHYDROUS
     Indication: Pain
     Route: 042
  2. DEXAMETHASONE [Concomitant]
     Active Substance: DEXAMETHASONE
     Route: 042
  3. HYDROMORPHONE HCL [Concomitant]
     Active Substance: HYDROMORPHONE HYDROCHLORIDE
     Route: 040
  4. FENTANYL [Concomitant]
     Active Substance: FENTANYL
     Route: 065
  5. KETAMINE HYDROCHLORIDE [Concomitant]
     Active Substance: KETAMINE HYDROCHLORIDE
     Route: 065
  6. BUPIVACAINE [Concomitant]
     Active Substance: BUPIVACAINE
     Route: 037

REACTIONS (2)
  - Hoigne^s syndrome [Recovered/Resolved]
  - Product use in unapproved indication [Unknown]
